FAERS Safety Report 7724109-X (Version None)
Quarter: 2011Q3

REPORT INFORMATION
  Report Type: 
  Country: None (occurrence: None)
  Receive Date: 20110901
  Receipt Date: 20110830
  Transmission Date: 20111222
  Serious: Yes (Hospitalization, Other)
  Sender: FDA-Public Use
  Company Number: US-ROCHE-562015

PATIENT
  Sex: Male
  Weight: 64.4 kg

DRUGS (2)
  1. ACCUTANE [Suspect]
     Route: 065
     Dates: start: 19930901, end: 19931001
  2. ACCUTANE [Suspect]
     Indication: ACNE
     Route: 065
     Dates: start: 19901101, end: 19910201

REACTIONS (5)
  - ILEUS [None]
  - COLITIS ULCERATIVE [None]
  - SMALL INTESTINAL OBSTRUCTION [None]
  - INFLAMMATORY BOWEL DISEASE [None]
  - COLONIC POLYP [None]
